FAERS Safety Report 5325799-1 (Version None)
Quarter: 2007Q2

REPORT INFORMATION
  Report Type: 
  Country: None (occurrence: None)
  Receive Date: 20070510
  Receipt Date: 20070501
  Transmission Date: 20071010
  Serious: Yes (Death, Life-Threatening, Hospitalization)
  Sender: FDA-Public Use
  Company Number: 2007000199

PATIENT
  Age: 75 Year
  Sex: Female

DRUGS (5)
  1. ERLOTINIB (TABLET) [Suspect]
     Indication: NON-SMALL CELL LUNG CANCER
     Dosage: 150 MG (QD), ORAL
     Route: 048
     Dates: start: 20061220, end: 20070124
  2. ALLOPURINOL [Concomitant]
  3. OXYBUTYNIN CHLORIDE [Concomitant]
  4. ACC (ACETYLCYSTEINE ) [Concomitant]
  5. ASPIRIN [Concomitant]

REACTIONS (1)
  - ERYTHEMA MULTIFORME [None]
